FAERS Safety Report 25140543 (Version 1)
Quarter: 2025Q1

REPORT INFORMATION
  Report Type: Spontaneous
  Country: US (occurrence: US)
  Receive Date: 20250331
  Receipt Date: 20250331
  Transmission Date: 20250409
  Serious: Yes (Other)
  Sender: HIKMA
  Company Number: HIKM2503102

PATIENT
  Sex: Male

DRUGS (2)
  1. AMPHETAMINE [Suspect]
     Active Substance: AMPHETAMINE
     Indication: Product used for unknown indication
     Route: 065
  2. METHAMPHETAMINE [Suspect]
     Active Substance: METHAMPHETAMINE
     Indication: Product used for unknown indication
     Route: 065

REACTIONS (8)
  - Psychotic disorder [Unknown]
  - Lethargy [Unknown]
  - Bradykinesia [Unknown]
  - Ocular hyperaemia [Unknown]
  - Eyelid ptosis [Unknown]
  - Drug abuse [Unknown]
  - Homicide [Unknown]
  - Legal problem [Unknown]
